FAERS Safety Report 5081607-8 (Version None)
Quarter: 2006Q3

REPORT INFORMATION
  Report Type: 
  Country: None (occurrence: None)
  Receive Date: 20060811
  Receipt Date: 20060807
  Transmission Date: 20061208
  Serious: Yes (Hospitalization)
  Sender: FDA-Public Use
  Company Number: STA-AE-05-MTX-017

PATIENT
  Age: 57 Year
  Sex: Female

DRUGS (5)
  1. METHOTREXATE [Suspect]
     Indication: RHEUMATOID ARTHRITIS
     Dosage: 15 MG - ORAL
     Route: 048
     Dates: start: 20041203
  2. PLACEBO [Suspect]
     Indication: RHEUMATOID ARTHRITIS
     Dosage: IV
     Route: 042
     Dates: start: 20050511
  3. PREDNISONE TAB [Concomitant]
  4. FOLIC ACID [Concomitant]
  5. VELTEX (DICLOFENAC SODIUM) [Concomitant]

REACTIONS (2)
  - ABSCESS SOFT TISSUE [None]
  - BACTERIAL INFECTION [None]
